FAERS Safety Report 15614986 (Version 1)
Quarter: 2018Q4

REPORT INFORMATION
  Report Type: Report from Study
  Country: US (occurrence: US)
  Receive Date: 20181114
  Receipt Date: 20181114
  Transmission Date: 20190205
  Serious: Yes (Other)
  Sender: FDA-Public Use
  Company Number: US-ASTELLAS-2018US048141

PATIENT
  Sex: Male

DRUGS (1)
  1. ISAVUCONAZOLE [Suspect]
     Active Substance: ISAVUCONAZOLE
     Indication: PRODUCT USED FOR UNKNOWN INDICATION
     Route: 048
     Dates: start: 20180502, end: 20181103

REACTIONS (5)
  - Gallbladder disorder [Unknown]
  - Dyspepsia [Unknown]
  - Nausea [Unknown]
  - Hepatic enzyme increased [Unknown]
  - Insomnia [Unknown]
